FAERS Safety Report 4520029-2 (Version None)
Quarter: 2004Q4

REPORT INFORMATION
  Report Type: 
  Country: None (occurrence: None)
  Receive Date: 20041207
  Receipt Date: 20041124
  Transmission Date: 20050328
  Serious: Yes (Other)
  Sender: FDA-Public Use
  Company Number: PHRM2004FR03471

PATIENT
  Sex: Female

DRUGS (1)
  1. TAREG [Suspect]
     Route: 048

REACTIONS (1)
  - AGRANULOCYTOSIS [None]
